FAERS Safety Report 14379612 (Version 1)
Quarter: 2018Q1

REPORT INFORMATION
  Report Type: Spontaneous
  Country: US (occurrence: US)
  Receive Date: 20180111
  Receipt Date: 20180111
  Transmission Date: 20180509
  Serious: No
  Sender: FDA-Public Use
  Company Number: None

PATIENT
  Age: 56 Year
  Sex: Female

DRUGS (2)
  1. INFED [Suspect]
     Active Substance: IRON DEXTRAN
     Indication: BLOOD TEST ABNORMAL
     Dosage: 500MG ON DAY 1 AND 8 OF A 28 DAY CYCLE IV
     Route: 042
     Dates: start: 20171121, end: 20171121
  2. INFED [Suspect]
     Active Substance: IRON DEXTRAN
     Indication: IRON DEFICIENCY ANAEMIA
     Dosage: 500MG ON DAY 1 AND 8 OF A 28 DAY CYCLE IV
     Route: 042
     Dates: start: 20171121, end: 20171121

REACTIONS (4)
  - Injection site swelling [None]
  - Back pain [None]
  - Miliaria [None]
  - Feeling hot [None]

NARRATIVE: CASE EVENT DATE: 20171121
